FAERS Safety Report 4396456-3 (Version None)
Quarter: 2004Q2

REPORT INFORMATION
  Report Type: 
  Country: None (occurrence: None)
  Receive Date: 20040621
  Receipt Date: 20020918
  Transmission Date: 20050107
  Serious: Yes (Death)
  Sender: FDA-Public Use
  Company Number: USA-2002-0002685

PATIENT
  Age: 52 Year
  Sex: Female
  Weight: 79.4 kg

DRUGS (12)
  1. OXYCONTIN [Suspect]
     Indication: PAIN
     Dosage: 10 MG, Q12H, ORAL
     Route: 048
     Dates: start: 20010227, end: 20010312
  2. OXYCONTIN [Suspect]
     Indication: PAIN
     Dosage: 40 MG, BID, ORAL
     Route: 048
     Dates: start: 20010312, end: 20010413
  3. OXYCONTIN [Suspect]
     Indication: PAIN
     Dosage: 80 MG, BID,
     Dates: start: 20010413
  4. OXYCONTIN [Suspect]
     Indication: PAIN
     Dosage: 20 MG, BID, ORAL
     Route: 048
     Dates: start: 19991207
  5. TRAZODONE HCL [Suspect]
     Indication: SLEEP DISORDER
     Dosage: 50 MG, SEE TEXT, ORAL
     Route: 048
     Dates: start: 20010227
  6. ULTRAM [Concomitant]
  7. NEURONTIN [Concomitant]
  8. CEPHALEXIN [Concomitant]
  9. MEPROBAMATE [Concomitant]
  10. ALPRAZOLAM [Concomitant]
  11. EXCEDRIN (MIGRAINE) [Concomitant]
  12. ZANAFLEX [Concomitant]

REACTIONS (7)
  - AFFECTIVE DISORDER [None]
  - CARDIO-RESPIRATORY ARREST [None]
  - DRUG ABUSER [None]
  - HYPOAESTHESIA [None]
  - OVERDOSE [None]
  - PAIN [None]
  - PARAESTHESIA [None]
